FAERS Safety Report 10751219 (Version 1)
Quarter: 2015Q1

REPORT INFORMATION
  Report Type: Spontaneous
  Country: JP (occurrence: JP)
  Receive Date: 20150130
  Receipt Date: 20150130
  Transmission Date: 20150721
  Serious: Yes (Death, Hospitalization)
  Sender: FDA-Public Use
  Company Number: JP-BAYER-2015-011979

PATIENT
  Age: 19 Year
  Sex: Female

DRUGS (8)
  1. MUCOSTA [Suspect]
     Active Substance: REBAMIPIDE
     Indication: MALAISE
     Dosage: UNK
     Route: 048
     Dates: start: 20070925
  2. CELESTAMINE [Suspect]
     Active Substance: BETAMETHASONE\DEXCHLORPHENIRAMINE MALEATE
     Indication: MALAISE
  3. SULPERAZON [Suspect]
     Active Substance: CEFOPERAZONE SODIUM\SULBACTAM SODIUM
     Indication: PYREXIA
     Dosage: UNK
     Dates: start: 20071002
  4. TRANSAMIN [Suspect]
     Active Substance: TRANEXAMIC ACID
     Indication: MALAISE
     Dosage: UNK
     Route: 048
     Dates: start: 20070925
  5. KLARICID [Suspect]
     Active Substance: CLARITHROMYCIN
     Indication: MALAISE
     Dosage: UNK
     Route: 048
     Dates: start: 20070925
  6. CIPROXAN [Suspect]
     Active Substance: CIPROFLOXACIN
     Indication: PYREXIA
     Dosage: UNK
     Route: 048
     Dates: start: 20071002
  7. CELESTAMINE [Suspect]
     Active Substance: BETAMETHASONE\DEXCHLORPHENIRAMINE MALEATE
     Indication: PYREXIA
     Dosage: UNK
     Route: 048
     Dates: start: 20070925
  8. PONSTEL [Suspect]
     Active Substance: MEFENAMIC ACID
     Indication: MALAISE
     Dosage: UNK
     Route: 048
     Dates: start: 20070925

REACTIONS (1)
  - Hepatitis fulminant [Fatal]

NARRATIVE: CASE EVENT DATE: 20071105
